FAERS Safety Report 14095809 (Version 1)
Quarter: 2017Q4

REPORT INFORMATION
  Report Type: Spontaneous
  Country: JP (occurrence: JP)
  Receive Date: 20171016
  Receipt Date: 20171016
  Transmission Date: 20180321
  Serious: Yes (Death)
  Sender: FDA-Public Use
  Company Number: JP-BRISTOL-MYERS SQUIBB COMPANY-12158416

PATIENT
  Age: 61 Year
  Sex: Male

DRUGS (2)
  1. RADIATION THERAPY [Concomitant]
     Active Substance: RADIATION THERAPY
     Indication: PRODUCT USED FOR UNKNOWN INDICATION
     Dosage: 2GY X 12 TIMES = 24 GY TOTAL.
     Route: 065
     Dates: end: 20021216
  2. PARAPLATIN [Suspect]
     Active Substance: CARBOPLATIN
     Indication: OROPHARYNGEAL NEOPLASM
     Dosage: ALSO TREATED ON 30-NOV AND 7-DEC
     Route: 042
     Dates: start: 20021214, end: 20021214

REACTIONS (3)
  - Anaemia [Fatal]
  - Platelet count decreased [Fatal]
  - White blood cell count decreased [Not Recovered/Not Resolved]

NARRATIVE: CASE EVENT DATE: 20021220
